FAERS Safety Report 7577594-0 (Version None)
Quarter: 2011Q2

REPORT INFORMATION
  Report Type: 
  Country: None (occurrence: None)
  Receive Date: 20110628
  Receipt Date: 20110113
  Transmission Date: 20111010
  Serious: No
  Sender: FDA-Public Use
  Company Number: US-KINGPHARMUSA00001-K201100064

PATIENT
  Age: 34 Year
  Sex: Female
  Weight: 47.619 kg

DRUGS (1)
  1. BICILLIN L-A [Suspect]
     Indication: LYME DISEASE
     Dosage: 1200000 IU, TIW
     Route: 030
     Dates: start: 20101101

REACTIONS (1)
  - INJECTION SITE SCAR [None]
